FAERS Safety Report 7859724-6 (Version None)
Quarter: 2011Q4

REPORT INFORMATION
  Report Type: 
  Country: None (occurrence: None)
  Receive Date: 20111027
  Receipt Date: 20111020
  Transmission Date: 20120403
  Serious: Yes (Other)
  Sender: FDA-Public Use
  Company Number: US-JNJFOC-20111009234

PATIENT
  Age: 53 Year
  Sex: Female

DRUGS (9)
  1. FLEXERIL [Concomitant]
     Route: 065
  2. TAMOXIFEN CITRATE [Concomitant]
     Route: 065
  3. NUCYNTA [Suspect]
     Indication: PAIN
     Route: 048
     Dates: start: 20111019
  4. ATIVAN [Concomitant]
     Route: 065
  5. OXYCODON [Concomitant]
     Indication: PAIN
     Route: 048
     Dates: end: 20111018
  6. PROAIR HFA [Concomitant]
     Route: 065
  7. AMITRIPTYLINE HCL [Concomitant]
     Indication: PAIN
     Route: 065
     Dates: end: 20111018
  8. PERCOCET [Concomitant]
     Indication: PAIN
     Route: 048
     Dates: end: 20111018
  9. SYMBICORT [Concomitant]
     Route: 065

REACTIONS (3)
  - CONFUSIONAL STATE [None]
  - DIZZINESS [None]
  - DRY MOUTH [None]
